FAERS Safety Report 12607487 (Version 1)
Quarter: 2016Q3

REPORT INFORMATION
  Report Type: Report from Study
  Country: CA (occurrence: CA)
  Receive Date: 20160729
  Receipt Date: 20160729
  Transmission Date: 20161109
  Serious: Yes (Death, Life-Threatening, Hospitalization, Other)
  Sender: FDA-Public Use
  Company Number: CA-ASTRAZENECA-2016SE05481

PATIENT
  Age: 76 Year
  Sex: Male

DRUGS (1)
  1. ZOLADEX LA [Suspect]
     Active Substance: GOSERELIN ACETATE
     Indication: PROSTATE CANCER METASTATIC
     Route: 058
     Dates: start: 20121022

REACTIONS (5)
  - Pain [Unknown]
  - Death [Fatal]
  - Cardiovascular disorder [Unknown]
  - Malignant neoplasm progression [Unknown]
  - Respiratory disorder [Unknown]

NARRATIVE: CASE EVENT DATE: 2015
